FAERS Safety Report 8765960 (Version 2)
Quarter: 2012Q4

REPORT INFORMATION
  Report Type: 
  Country: JP (occurrence: JP)
  Receive Date: 20120904
  Receipt Date: 20120906
  Transmission Date: 20130627
  Serious: Yes (Hospitalization)
  Sender: FDA-Public Use
  Company Number: JP-ASTRAZENECA-2012SE65295

PATIENT
  Sex: Male

DRUGS (2)
  1. ZOLADEX [Suspect]
     Indication: PROSTATE CANCER
     Route: 058
     Dates: end: 20120824
  2. ODYNE [Concomitant]
     Dosage: UNKNOWN DOSE THREE TIMES A DAY
     Route: 048

REACTIONS (1)
  - Pneumocystis jiroveci pneumonia [Not Recovered/Not Resolved]
